FAERS Safety Report 5659905-6 (Version None)
Quarter: 2008Q1

REPORT INFORMATION
  Report Type: 
  Country: None (occurrence: None)
  Receive Date: 20080311
  Receipt Date: 20070808
  Transmission Date: 20080703
  Serious: No
  Sender: FDA-Public Use
  Company Number: US-BAYER-200712560BCC

PATIENT
  Age: 82 Year
  Sex: Male
  Weight: 88 kg

DRUGS (3)
  1. ALEVE [Suspect]
     Indication: NECK PAIN
     Dosage: TOTAL DAILY DOSE: 220 MG  UNIT DOSE: 220 MG
     Route: 048
     Dates: start: 20070801
  2. CARDURA [Concomitant]
  3. PROSCAR [Concomitant]

REACTIONS (1)
  - BLISTER [None]
